FAERS Safety Report 9225904 (Version 1)
Quarter: 2013Q2

REPORT INFORMATION
  Report Type: Spontaneous
  Country: US (occurrence: US)
  Receive Date: 20130411
  Receipt Date: 20130411
  Transmission Date: 20140414
  Serious: No
  Sender: FDA-Public Use
  Company Number: US-ASTELLAS-2012US003999

PATIENT
  Sex: 0

DRUGS (1)
  1. PROTOPIC [Suspect]
     Indication: ECZEMA
     Dosage: 0.1 %, UNKNOWN/D
     Route: 061
     Dates: start: 20120223

REACTIONS (4)
  - Application site inflammation [Unknown]
  - Application site pain [Unknown]
  - Application site pruritus [Unknown]
  - Application site warmth [Unknown]
